FAERS Safety Report 8302266-4 (Version None)
Quarter: 2012Q2

REPORT INFORMATION
  Report Type: 
  Country: None (occurrence: None)
  Receive Date: 20120420
  Receipt Date: 20120418
  Transmission Date: 20120825
  Serious: Yes (Death, Hospitalization)
  Sender: FDA-Public Use
  Company Number: US-GILEAD-2012-0053035

PATIENT
  Sex: Female

DRUGS (3)
  1. LETAIRIS [Suspect]
     Indication: PORTOPULMONARY HYPERTENSION
     Dosage: 5 MG, UNK
     Route: 048
     Dates: start: 20120307, end: 20120318
  2. LETAIRIS [Suspect]
     Indication: AUTOANTIBODY POSITIVE
  3. LETAIRIS [Suspect]
     Indication: SYSTEMIC SCLEROSIS

REACTIONS (1)
  - UNEVALUABLE EVENT [None]
